FAERS Safety Report 22673725 (Version 3)
Quarter: 2024Q4

REPORT INFORMATION
  Report Type: Spontaneous
  Country: US (occurrence: US)
  Receive Date: 20230705
  Receipt Date: 20241004
  Transmission Date: 20250115
  Serious: Yes (Other)
  Sender: PFIZER
  Company Number: US-PFIZER INC-PV202300114468

PATIENT
  Age: 70 Year
  Sex: Male

DRUGS (1)
  1. XELJANZ XR [Suspect]
     Active Substance: TOFACITINIB CITRATE
     Dosage: 11 MG, 1X/DAY (TAKES 1 TABLET PER DAY)

REACTIONS (3)
  - Oral surgery [Unknown]
  - Knee arthroplasty [Unknown]
  - Product dispensing error [Unknown]

NARRATIVE: CASE EVENT DATE: 20230101
